FAERS Safety Report 9964553 (Version 2)
Quarter: 2014Q1

REPORT INFORMATION
  Report Type: Spontaneous
  Country: MX (occurrence: MX)
  Receive Date: 20140305
  Receipt Date: 20140321
  Transmission Date: 20141002
  Serious: Yes (Other)
  Sender: FDA-Public Use
  Company Number: PHHY2014MX026692

PATIENT
  Age: 56 Year
  Sex: Female

DRUGS (2)
  1. CO-DIOVAN [Suspect]
     Indication: HYPERTENSION
     Dosage: 1 DF (160/12.5 MG), DAILY
     Route: 048
  2. NOVOTIRAL [Concomitant]
     Indication: THYROID DISORDER
     Dosage: 200 MG, DAILY
     Dates: start: 1990

REACTIONS (9)
  - Uterine disorder [Recovered/Resolved]
  - Ovarian disorder [Recovered/Resolved]
  - General physical health deterioration [Unknown]
  - Oedema peripheral [Recovered/Resolved]
  - Blood cholesterol increased [Recovered/Resolved]
  - Blood triglycerides increased [Recovered/Resolved]
  - Blood pressure inadequately controlled [Recovered/Resolved]
  - Hypertension [Recovered/Resolved]
  - Drug ineffective [Recovered/Resolved]
